FAERS Safety Report 16881956 (Version 6)
Quarter: 2020Q1

REPORT INFORMATION
  Report Type: Report from Study
  Country: US (occurrence: US)
  Receive Date: 20191003
  Receipt Date: 20200103
  Transmission Date: 20200409
  Serious: Yes (Death, Hospitalization)
  Sender: FDA-Public Use
  Company Number: US-ACTELION-A-NJ2019-194445

PATIENT
  Age: 84 Year
  Sex: Female
  Weight: 60.32 kg

DRUGS (5)
  1. OPSUMIT [Suspect]
     Active Substance: MACITENTAN
     Indication: PULMONARY ARTERIAL HYPERTENSION
     Dosage: 10 MG, QD
     Route: 048
  2. UPTRAVI [Suspect]
     Active Substance: SELEXIPAG
     Dosage: 600 MCG, BID
     Route: 048
  3. UPTRAVI [Suspect]
     Active Substance: SELEXIPAG
     Dosage: 200 MCG, BID
     Route: 048
  4. TADALAFIL. [Concomitant]
     Active Substance: TADALAFIL
  5. UPTRAVI [Suspect]
     Active Substance: SELEXIPAG
     Indication: PULMONARY ARTERIAL HYPERTENSION
     Dosage: 400 MCG, BID
     Route: 048

REACTIONS (19)
  - Adverse drug reaction [Unknown]
  - Pain [Unknown]
  - Tinnitus [Unknown]
  - Weight increased [Unknown]
  - Swelling [Unknown]
  - Pruritus [Unknown]
  - Fatigue [Unknown]
  - Death [Fatal]
  - Oedema [Unknown]
  - Headache [Unknown]
  - Anxiety [Unknown]
  - Arthralgia [Unknown]
  - Myalgia [Unknown]
  - Amnesia [Unknown]
  - Dyspnoea [Unknown]
  - Hospice care [Unknown]
  - Somnolence [Unknown]
  - Appetite disorder [Unknown]
  - Blood pressure decreased [Unknown]

NARRATIVE: CASE EVENT DATE: 20191211
